FAERS Safety Report 14638340 (Version 1)
Quarter: 2018Q1

REPORT INFORMATION
  Report Type: Spontaneous
  Country: US (occurrence: US)
  Receive Date: 20180314
  Receipt Date: 20180314
  Transmission Date: 20180509
  Serious: No
  Sender: FDA-Public Use
  Company Number: None

PATIENT
  Age: 4 Year
  Sex: Male
  Weight: 18.9 kg

DRUGS (2)
  1. EQUATE CLEAR LAX [Suspect]
     Active Substance: POLYETHYLENE GLYCOL 3350
     Indication: CONSTIPATION
     Dosage: ?          QUANTITY:1 CAPFUL;OTHER FREQUENCY:EVERY OTHER DAY;?
     Route: 048
     Dates: start: 20160110, end: 20180313
  2. MULTIVITAMIN [Concomitant]
     Active Substance: VITAMINS

REACTIONS (4)
  - Abnormal behaviour [None]
  - Aggression [None]
  - Anger [None]
  - Personality change [None]

NARRATIVE: CASE EVENT DATE: 20180305
